FAERS Safety Report 8811275 (Version 2)
Quarter: 2012Q4

REPORT INFORMATION
  Report Type: Report from Study
  Country: JP (occurrence: JP)
  Receive Date: 20120927
  Receipt Date: 20121130
  Transmission Date: 20130627
  Serious: Yes (Other)
  Sender: FDA-Public Use
  Company Number: JP-VERTEX PHARMACEUTICAL INC.-AE-2012-007685

PATIENT
  Age: 63 Year
  Sex: Female

DRUGS (28)
  1. VX-950 (TELAPREVIR) [Suspect]
     Indication: CHRONIC HEPATITIS C
     Dosage: 2250 mg, qd
     Route: 048
     Dates: start: 20120316, end: 20120403
  2. VX-950 (TELAPREVIR) [Suspect]
     Dosage: 1500 mg, qd
     Route: 048
     Dates: start: 20120404, end: 20120406
  3. VX-950 (TELAPREVIR) [Suspect]
     Dosage: 1250 mg, qd
     Route: 048
     Dates: start: 20120407, end: 20120408
  4. VX-950 (TELAPREVIR) [Suspect]
     Dosage: 1000 mg, qd
     Route: 048
     Dates: start: 20120409, end: 20120410
  5. VX-950 (TELAPREVIR) [Suspect]
     Dosage: 1250 mg, qd
     Route: 048
     Dates: start: 20120411, end: 20120508
  6. VX-950 (TELAPREVIR) [Suspect]
     Dosage: 1500 mg, qd
     Route: 048
     Dates: start: 20120509, end: 20120605
  7. REBETOL [Suspect]
     Indication: CHRONIC HEPATITIS C
     Dosage: 600 mg, qd
     Route: 048
     Dates: start: 20120316, end: 20120319
  8. REBETOL [Suspect]
     Dosage: 400 mg, qd
     Route: 048
     Dates: start: 20120320, end: 20120408
  9. REBETOL [Suspect]
     Dosage: 200 mg, qd
     Route: 048
     Dates: start: 20120409, end: 20120605
  10. REBETOL [Suspect]
     Dosage: 400 mg, qd
     Route: 048
     Dates: start: 20120606, end: 20120710
  11. REBETOL [Suspect]
     Dosage: 600 mg, qd
     Route: 048
     Dates: start: 20120711, end: 20120724
  12. REBETOL [Suspect]
     Dosage: 400 mg, qd
     Route: 048
     Dates: start: 20120725, end: 20120904
  13. PEGINTRON                          /01543001/ [Suspect]
     Indication: CHRONIC HEPATITIS C
     Dosage: 80 ?g, UNK
     Route: 058
     Dates: start: 20120316, end: 20120316
  14. PEGINTRON                          /01543001/ [Suspect]
     Dosage: 40 ?g, UNK
     Route: 058
     Dates: start: 20120322, end: 20120322
  15. PEGINTRON                          /01543001/ [Suspect]
     Dosage: 80 ?g, UNK
     Route: 058
     Dates: start: 20120328, end: 20120328
  16. PEGINTRON                          /01543001/ [Suspect]
     Dosage: 40 ?g, UNK
     Route: 058
     Dates: start: 20120404, end: 20120404
  17. PEGINTRON                          /01543001/ [Suspect]
     Dosage: 50 ?g, UNK
     Route: 058
     Dates: start: 20120411, end: 20120411
  18. PEGINTRON                          /01543001/ [Suspect]
     Dosage: 40 ?g, UNK
     Route: 058
     Dates: start: 20120418, end: 20120418
  19. PEGINTRON                          /01543001/ [Suspect]
     Dosage: 40 ?g, UNK
     Route: 058
     Dates: start: 20120425, end: 20120425
  20. PEGINTRON                          /01543001/ [Suspect]
     Dosage: 0.57 ?g/kg, qw
     Route: 058
     Dates: start: 20120502, end: 20120508
  21. PEGINTRON                          /01543001/ [Suspect]
     Dosage: 0.75 ?g/kg, qw
     Route: 058
     Dates: start: 20120509, end: 20120515
  22. PEGINTRON                          /01543001/ [Suspect]
     Dosage: 0.57 ?g/kg, qw
     Route: 058
     Dates: start: 20120516, end: 20120626
  23. PEGINTRON                          /01543001/ [Suspect]
     Dosage: 0.75 ?g/kg, qw
     Route: 058
     Dates: start: 20120627, end: 20120703
  24. PEGINTRON                          /01543001/ [Suspect]
     Dosage: 0.94 ?g/kg, qw
     Route: 058
     Dates: start: 20120704, end: 20120724
  25. PEGINTRON                          /01543001/ [Suspect]
     Dosage: 1.13 ?g/kg, qw
     Route: 058
     Dates: start: 20120725, end: 20120828
  26. PEGINTRON                          /01543001/ [Suspect]
     Dosage: 1.32 ?g/kg, qw
     Route: 058
     Dates: start: 20120829, end: 20120904
  27. BIO-THREE [Concomitant]
     Dosage: 3 DF, qd
     Route: 048
     Dates: start: 20120322, end: 20120406
  28. ZETIA [Concomitant]
     Dosage: 10 mg, qd
     Route: 048
     Dates: start: 20120523

REACTIONS (1)
  - White blood cell count decreased [Not Recovered/Not Resolved]
